FAERS Safety Report 5319966-0 (Version None)
Quarter: 2007Q2

REPORT INFORMATION
  Report Type: 
  Country: None (occurrence: None)
  Receive Date: 20070509
  Receipt Date: 20070501
  Transmission Date: 20071010
  Serious: Yes (Other)
  Sender: FDA-Public Use
  Company Number: CA-JNJFOC-20070302699

PATIENT
  Sex: Female
  Weight: 51 kg

DRUGS (13)
  1. REMICADE [Suspect]
     Route: 042
  2. REMICADE [Suspect]
     Route: 042
  3. REMICADE [Suspect]
     Route: 042
  4. REMICADE [Suspect]
     Route: 042
  5. REMICADE [Suspect]
     Indication: RHEUMATOID ARTHRITIS
     Route: 042
  6. ACTONEL [Concomitant]
     Indication: OSTEOPOROSIS
     Route: 048
  7. CELEBREX [Concomitant]
     Indication: ARTHRITIS
     Route: 048
  8. CALCIUM WITH VITAMIN D [Concomitant]
     Indication: OSTEOPOROSIS
     Dosage: 500/400 MG
     Route: 048
  9. DICAPEX [Concomitant]
     Indication: ARTHRITIS
     Route: 048
  10. METHOTREXATE [Concomitant]
     Indication: ARTHRITIS
     Route: 048
  11. FOLIC ACID [Concomitant]
     Indication: PROPHYLAXIS
     Route: 048
  12. PANTOPRAZOLE SODIUM [Concomitant]
     Indication: DYSPEPSIA
     Route: 048
  13. PREDNISONE TAB [Concomitant]

REACTIONS (1)
  - DEMENTIA ALZHEIMER'S TYPE [None]
